FAERS Safety Report 23361591 (Version 1)
Quarter: 2024Q1

REPORT INFORMATION
  Report Type: Spontaneous
  Country: US (occurrence: None)
  Receive Date: 20240102
  Receipt Date: 20240102
  Transmission Date: 20240410
  Serious: Yes (Hospitalization)
  Sender: FDA-Public Use
  Company Number: None

PATIENT
  Age: 61 Year
  Sex: Male
  Weight: 82.4 kg

DRUGS (13)
  1. GEMTUZUMAB OZOGAMICIN [Suspect]
     Active Substance: GEMTUZUMAB OZOGAMICIN
     Indication: Acute myeloid leukaemia
     Dosage: OTHER FREQUENCY : DAYS 1,4 AND 7;?
     Route: 042
     Dates: start: 20231130, end: 20231206
  2. GEMTUZUMAB OZOGAMICIN [Suspect]
     Active Substance: GEMTUZUMAB OZOGAMICIN
     Indication: Leukaemia recurrent
  3. TAGRAXOFUSP-ERZS [Suspect]
     Active Substance: TAGRAXOFUSP-ERZS
     Indication: Acute myeloid leukaemia
     Dosage: OTHER FREQUENCY : DAILY, DAYS 10-12;?
     Route: 042
     Dates: start: 20231209, end: 20231210
  4. TAGRAXOFUSP-ERZS [Suspect]
     Active Substance: TAGRAXOFUSP-ERZS
     Indication: Leukaemia recurrent
  5. ACYCLOVIR [Concomitant]
     Active Substance: ACYCLOVIR
  6. ATOVAQUONE [Concomitant]
     Active Substance: ATOVAQUONE
  7. ALLOPURINOL [Concomitant]
     Active Substance: ALLOPURINOL
  8. MOXIFLOXACIN [Concomitant]
     Active Substance: MOXIFLOXACIN
  9. MICAFUNGIN [Concomitant]
     Active Substance: MICAFUNGIN SODIUM
  10. FAMODIDINE [Concomitant]
  11. DIPHENHYDRAMINE [Concomitant]
     Active Substance: DIPHENHYDRAMINE
  12. ACETAMINOPHEN [Concomitant]
     Active Substance: ACETAMINOPHEN
  13. METHYLPREDNISOLONE [Concomitant]
     Active Substance: METHYLPREDNISOLONE

REACTIONS (20)
  - Pyrexia [None]
  - Chills [None]
  - Lactic acidosis [None]
  - Cytomegalovirus infection reactivation [None]
  - Pulmonary mass [None]
  - Diarrhoea [None]
  - Therapy interrupted [None]
  - Oxygen saturation decreased [None]
  - Tachypnoea [None]
  - White blood cell count increased [None]
  - Capillary leak syndrome [None]
  - Hypoalbuminaemia [None]
  - Hypervolaemia [None]
  - Cholecystitis [None]
  - Pneumonia [None]
  - Gallbladder enlargement [None]
  - Lung opacity [None]
  - Pleural effusion [None]
  - Lymphadenopathy [None]
  - Pneumonia [None]

NARRATIVE: CASE EVENT DATE: 20231211
